FAERS Safety Report 6459997-0 (Version None)
Quarter: 2009Q4

REPORT INFORMATION
  Report Type: 
  Country: None (occurrence: None)
  Receive Date: 20091129
  Receipt Date: 20091118
  Transmission Date: 20100525
  Serious: Yes (Death, Other)
  Sender: FDA-Public Use
  Company Number: PHEH2009US15172

PATIENT
  Sex: Male
  Weight: 90.703 kg

DRUGS (2)
  1. EXJADE [Suspect]
     Indication: CHRONIC LYMPHOCYTIC LEUKAEMIA
     Dosage: 1750 MG DAILY
     Route: 048
     Dates: start: 20090108, end: 20090927
  2. EXJADE [Suspect]
     Indication: IRON OVERLOAD

REACTIONS (7)
  - BLOOD COUNT ABNORMAL [None]
  - BONE MARROW FAILURE [None]
  - HAEMATOCRIT DECREASED [None]
  - HAEMOGLOBIN DECREASED [None]
  - HAEMOLYTIC TRANSFUSION REACTION [None]
  - HYPOPERFUSION [None]
  - MALIGNANT NEOPLASM PROGRESSION [None]
